FAERS Safety Report 6376489-8 (Version None)
Quarter: 2009Q3

REPORT INFORMATION
  Report Type: 
  Country: None (occurrence: None)
  Receive Date: 20090922
  Receipt Date: 20090922
  Transmission Date: 20100115
  Serious: Yes (Life-Threatening, Hospitalization)
  Sender: FDA-Public Use
  Company Number: None

PATIENT
  Sex: Female
  Weight: 72.5755 kg

DRUGS (4)
  1. CYMBALTA [Suspect]
     Indication: DEPRESSION
     Dosage: 30 - 120 MG ONCE DAILY PO
     Route: 048
     Dates: start: 20080301, end: 20080710
  2. CYMBALTA [Suspect]
     Indication: FIBROMYALGIA
     Dosage: 30 - 120 MG ONCE DAILY PO
     Route: 048
     Dates: start: 20080301, end: 20080710
  3. CYMBALTA [Suspect]
     Indication: DEPRESSION
     Dosage: 30 - 120 MG ONCE DAILY PO
     Route: 048
     Dates: start: 20081115, end: 20090905
  4. CYMBALTA [Suspect]
     Indication: FIBROMYALGIA
     Dosage: 30 - 120 MG ONCE DAILY PO
     Route: 048
     Dates: start: 20081115, end: 20090905

REACTIONS (15)
  - AFFECTIVE DISORDER [None]
  - AMNESIA [None]
  - ANXIETY [None]
  - BLOOD PRESSURE INCREASED [None]
  - COGNITIVE DISORDER [None]
  - CONVULSION [None]
  - DEPENDENCE [None]
  - DEPRESSION [None]
  - DRUG DEPENDENCE [None]
  - DYSPHEMIA [None]
  - MENTAL IMPAIRMENT [None]
  - NERVOUS SYSTEM DISORDER [None]
  - PRURITUS [None]
  - SUICIDAL IDEATION [None]
  - WEIGHT INCREASED [None]
